FAERS Safety Report 5772343-0 (Version None)
Quarter: 2008Q2

REPORT INFORMATION
  Report Type: 
  Country: None (occurrence: None)
  Receive Date: 20080613
  Receipt Date: 20080602
  Transmission Date: 20081010
  Serious: No
  Sender: FDA-Public Use
  Company Number: MX-ROCHE-568762

PATIENT
  Sex: Female
  Weight: 61 kg

DRUGS (3)
  1. ISOTRETINOIN [Suspect]
     Indication: ACNE
     Dosage: DOSAGE REGIMEN: QD
     Route: 048
     Dates: start: 20080412, end: 20080418
  2. TETREX [Concomitant]
     Indication: ACNE
     Dosage: DOSAGE REGIMEN: QD
     Route: 048
     Dates: start: 20071001, end: 20080301
  3. 1 CONCOMITANT DRUG [Concomitant]
     Indication: ACNE
     Dosage: DRUG REPORTED: TETRALIZAL. DOSAGE REGIMEN: QD
     Route: 048
     Dates: start: 20080428, end: 20080524

REACTIONS (2)
  - NO ADVERSE EVENT [None]
  - PREGNANCY [None]
